FAERS Safety Report 16809370 (Version 4)
Quarter: 2023Q1

REPORT INFORMATION
  Report Type: Report from Study
  Country: BR (occurrence: BR)
  Receive Date: 20190916
  Receipt Date: 20230217
  Transmission Date: 20230417
  Serious: Yes (Hospitalization)
  Sender: FDA-Public Use
  Company Number: BR-BIOGEN-2019BI00784917

PATIENT
  Sex: Male
  Weight: 62 kg

DRUGS (5)
  1. AVONEX PEN [Suspect]
     Active Substance: INTERFERON BETA-1A
     Indication: Multiple sclerosis
     Route: 050
     Dates: start: 201903, end: 201907
  2. AVONEX PEN [Suspect]
     Active Substance: INTERFERON BETA-1A
     Route: 050
     Dates: start: 2016
  3. AVONEX PEN [Suspect]
     Active Substance: INTERFERON BETA-1A
  4. AVONEX PEN [Suspect]
     Active Substance: INTERFERON BETA-1A
  5. BACLOFEN [Concomitant]
     Active Substance: BACLOFEN
     Indication: Muscle fatigue
     Route: 050

REACTIONS (8)
  - Multiple sclerosis relapse [Recovered/Resolved]
  - Influenza [Recovered/Resolved]
  - Balance disorder [Unknown]
  - Dysstasia [Recovered/Resolved]
  - Multiple sclerosis [Recovered/Resolved]
  - Asthenia [Recovered/Resolved]
  - Muscular weakness [Recovered/Resolved]
  - Vomiting [Recovered/Resolved]

NARRATIVE: CASE EVENT DATE: 20160101
